FAERS Safety Report 9041295 (Version 1)
Quarter: 2013Q1

REPORT INFORMATION
  Report Type: Report from Study
  Country: US (occurrence: US)
  Receive Date: 20130129
  Receipt Date: 20130129
  Transmission Date: 20140127
  Serious: No
  Sender: FDA-Public Use
  Company Number: US-ABBOTT-12P-163-0901068-00

PATIENT
  Age: 68 Year
  Sex: Male

DRUGS (6)
  1. HUMIRA 40 MG/0.8 ML PEN [Suspect]
     Indication: POLYARTHRITIS
     Dates: start: 20111230
  2. CALCIUM WITH VITAMIN D3 [Concomitant]
     Indication: MINERAL SUPPLEMENTATION
     Dosage: 600MG/500IU, TWICE DAILY
  3. VITAMIN D3 [Concomitant]
     Indication: VITAMIN SUPPLEMENTATION
  4. B2 [Concomitant]
     Indication: VITAMIN SUPPLEMENTATION
  5. PROTONIX [Concomitant]
     Indication: GASTRIC DISORDER
  6. PREDNISONE [Concomitant]
     Indication: INFLAMMATION

REACTIONS (1)
  - Pain [Not Recovered/Not Resolved]
